FAERS Safety Report 9157073 (Version 3)
Quarter: 2013Q2

REPORT INFORMATION
  Report Type: Report from Study
  Country: AU (occurrence: AU)
  Receive Date: 20130312
  Receipt Date: 20130614
  Transmission Date: 20140414
  Serious: Yes (Other)
  Sender: FDA-Public Use
  Company Number: AU-JNJFOC-20130302551

PATIENT
  Age: 57 Year
  Sex: Female

DRUGS (5)
  1. STELARA [Suspect]
     Indication: PSORIASIS
     Route: 058
     Dates: start: 20130309
  2. STELARA [Suspect]
     Indication: PSORIASIS
     Route: 058
     Dates: start: 20121215
  3. STELARA [Suspect]
     Indication: PSORIASIS
     Route: 058
     Dates: start: 20120331
  4. MIXTARD [Concomitant]
     Dates: start: 201211
  5. NOVOMIX [Concomitant]
     Dates: start: 201211

REACTIONS (10)
  - Liver disorder [Unknown]
  - Liver function test abnormal [Unknown]
  - Jaundice [Unknown]
  - Weight decreased [Unknown]
  - Malaise [Recovered/Resolved]
  - Abdominal distension [Recovered/Resolved]
  - Abdominal pain upper [Recovered/Resolved]
  - Decreased appetite [Unknown]
  - Fatigue [Recovered/Resolved]
  - Psoriasis [Unknown]
